FAERS Safety Report 8365534-6 (Version None)
Quarter: 2012Q2

REPORT INFORMATION
  Report Type: 
  Country: None (occurrence: None)
  Receive Date: 20120516
  Receipt Date: 20120503
  Transmission Date: 20120825
  Serious: No
  Sender: FDA-Public Use
  Company Number: US-ELI_LILLY_AND_COMPANY-US201204001608

PATIENT
  Age: 35 Year
  Sex: Female

DRUGS (1)
  1. CYMBALTA [Suspect]
     Indication: DEPRESSION
     Dosage: 60 MG, QD
     Dates: end: 20120330

REACTIONS (8)
  - PARAESTHESIA [None]
  - NAUSEA [None]
  - DIARRHOEA [None]
  - INTENTIONAL DRUG MISUSE [None]
  - IRRITABILITY [None]
  - WITHDRAWAL SYNDROME [None]
  - DIZZINESS [None]
  - DISTURBANCE IN ATTENTION [None]
